FAERS Safety Report 8757924 (Version 3)
Quarter: 2012Q4

REPORT INFORMATION
  Report Type: 
  Country: US (occurrence: US)
  Receive Date: 20120828
  Receipt Date: 20121003
  Transmission Date: 20130627
  Serious: Yes (Other)
  Sender: FDA-Public Use
  Company Number: US-ASTELLAS-2012US006941

PATIENT
  Sex: Female
  Weight: 48 kg

DRUGS (2)
  1. PROGRAF [Suspect]
     Indication: BONE MARROW TRANSPLANT
     Dosage: 2 mg AM, 1 mg PM
     Route: 048
     Dates: start: 200606
  2. UNSPECIFIED INGREDIENT [Interacting]
     Indication: PRODUCT USED FOR UNKNOWN INDICATION
     Dosage: UNK
     Route: 065

REACTIONS (5)
  - Off label use [Unknown]
  - Graft versus host disease [Unknown]
  - Oesophageal stenosis [Unknown]
  - Drug interaction [Unknown]
  - Blood pressure increased [Unknown]
